FAERS Safety Report 12807807 (Version 1)
Quarter: 2016Q4

REPORT INFORMATION
  Report Type: Spontaneous
  Country: US (occurrence: US)
  Receive Date: 20161004
  Receipt Date: 20161004
  Transmission Date: 20170207
  Serious: No
  Sender: FDA-Public Use
  Company Number: US-AMGEN-USASP2016068006

PATIENT

DRUGS (2)
  1. XGEVA [Suspect]
     Active Substance: DENOSUMAB
     Indication: PRODUCT USED FOR UNKNOWN INDICATION
     Dosage: Q6WK
     Route: 065
  2. OXYCODONE [Concomitant]
     Active Substance: OXYCODONE

REACTIONS (3)
  - Drug ineffective [Unknown]
  - Arthralgia [Unknown]
  - Pain in jaw [Unknown]
